FAERS Safety Report 5889305-5 (Version None)
Quarter: 2008Q3

REPORT INFORMATION
  Report Type: 
  Country: None (occurrence: None)
  Receive Date: 20080917
  Receipt Date: 20080502
  Transmission Date: 20090109
  Serious: Yes (Life-Threatening, Hospitalization)
  Sender: FDA-Public Use
  Company Number: 200813439

PATIENT
  Age: 52 Year
  Sex: Male
  Weight: 120 kg

DRUGS (10)
  1. PRIVIGEN [Suspect]
     Indication: IDIOPATHIC THROMBOCYTOPENIC PURPURA
     Dosage: 120 G DAILY IV; IV;  120 G DAILY IV; IV
     Route: 042
     Dates: start: 20080427, end: 20080427
  2. PRIVIGEN [Suspect]
     Indication: IDIOPATHIC THROMBOCYTOPENIC PURPURA
     Dosage: 120 G DAILY IV; IV;  120 G DAILY IV; IV
     Route: 042
     Dates: start: 20080427, end: 20080427
  3. PRIVIGEN [Suspect]
     Indication: IDIOPATHIC THROMBOCYTOPENIC PURPURA
     Dosage: 120 G DAILY IV; IV;  120 G DAILY IV; IV
     Route: 042
     Dates: start: 20080428, end: 20080428
  4. PRIVIGEN [Suspect]
     Indication: IDIOPATHIC THROMBOCYTOPENIC PURPURA
     Dosage: 120 G DAILY IV; IV;  120 G DAILY IV; IV
     Route: 042
     Dates: start: 20080428, end: 20080428
  5. PRIVIGEN [Suspect]
  6. FOLIC ACID [Concomitant]
  7. PREDNISONE [Concomitant]
  8. SLIDING SCALE ASPART INSULIN [Concomitant]
  9. CILARITIN [Concomitant]
  10. PRIVIGEN [Suspect]

REACTIONS (2)
  - HAEMOLYTIC ANAEMIA [None]
  - RENAL FAILURE [None]
